FAERS Safety Report 7081132-9 (Version None)
Quarter: 2010Q4

REPORT INFORMATION
  Report Type: 
  Country: None (occurrence: None)
  Receive Date: 20101103
  Receipt Date: 20101028
  Transmission Date: 20110411
  Serious: Yes (Other)
  Sender: FDA-Public Use
  Company Number: A0890278A

PATIENT
  Age: 74 Year
  Sex: Male

DRUGS (1)
  1. ARIXTRA [Suspect]
     Indication: KNEE OPERATION
     Dosage: 2.5MG PER DAY
     Route: 058
     Dates: start: 20090101

REACTIONS (3)
  - BLINDNESS [None]
  - MACULAR DEGENERATION [None]
  - RETINAL HAEMORRHAGE [None]
